FAERS Safety Report 21707936 (Version 6)
Quarter: 2023Q1

REPORT INFORMATION
  Report Type: Spontaneous
  Country: KR (occurrence: KR)
  Receive Date: 20221209
  Receipt Date: 20230227
  Transmission Date: 20230418
  Serious: Yes (Death, Other)
  Sender: FDA-Public Use
  Company Number: KR-009507513-2212KOR002414

PATIENT
  Age: 54 Year
  Sex: Female
  Weight: 66.2 kg

DRUGS (3)
  1. KEYTRUDA [Suspect]
     Active Substance: PEMBROLIZUMAB
     Indication: Endometrial cancer
     Dosage: 200 MG, IV, EVERY 3 WEEKS
     Route: 042
     Dates: start: 20220604, end: 20220604
  2. LENVATINIB MESYLATE [Suspect]
     Active Substance: LENVATINIB MESYLATE
     Indication: Endometrial cancer
     Dosage: 20 MG, ONCE A DAY
     Route: 048
     Dates: start: 20220604, end: 20220616
  3. LENVATINIB MESYLATE [Suspect]
     Active Substance: LENVATINIB MESYLATE
     Dosage: 14 MG, ONCE A DAY
     Route: 048
     Dates: start: 20220617, end: 20220624

REACTIONS (5)
  - Cardiac arrest [Fatal]
  - Shock [Not Recovered/Not Resolved]
  - Hyperkalaemia [Not Recovered/Not Resolved]
  - Acidosis [Not Recovered/Not Resolved]
  - Blood pressure diastolic decreased [Unknown]

NARRATIVE: CASE EVENT DATE: 20220715
